FAERS Safety Report 8610521-3 (Version None)
Quarter: 2012Q3

REPORT INFORMATION
  Report Type: 
  Country: None (occurrence: None)
  Receive Date: 20120423
  Receipt Date: 20100420
  Transmission Date: 20120928
  Serious: Yes (Other)
  Sender: FDA-Public Use
  Company Number: PHHY2010US23009

PATIENT
  Age: 60 Year
  Sex: Female

DRUGS (2)
  1. ARMIDEX ^ASTRAZENECA^ (ANASTROZOLE) [Concomitant]
  2. FEMARA [Suspect]
     Indication: BREAST CANCER
     Dosage: 2.5 MG, QD, ORAL
     Route: 048
     Dates: start: 20090122, end: 20090226

REACTIONS (7)
  - OEDEMA PERIPHERAL [None]
  - DRUG DOSE OMISSION [None]
  - MOVEMENT DISORDER [None]
  - BACK INJURY [None]
  - JOINT SWELLING [None]
  - JOINT INJURY [None]
  - ARTHRALGIA [None]
